FAERS Safety Report 6226362-0 (Version None)
Quarter: 2009Q2

REPORT INFORMATION
  Report Type: 
  Country: None (occurrence: None)
  Receive Date: 20090612
  Receipt Date: 20090605
  Transmission Date: 20091009
  Serious: Yes (Other)
  Sender: FDA-Public Use
  Company Number: FR-JNJFOC-20090602493

PATIENT

DRUGS (3)
  1. HALDOL [Suspect]
     Indication: DRUG USE FOR UNKNOWN INDICATION
     Dosage: 17 YEARS
     Route: 048
  2. NOZINAN [Suspect]
     Indication: DRUG USE FOR UNKNOWN INDICATION
     Dosage: 17 YEARS
     Route: 048
  3. ARTANE [Suspect]
     Indication: DRUG USE FOR UNKNOWN INDICATION
     Dosage: 17 YEARS
     Route: 065

REACTIONS (3)
  - COLITIS [None]
  - CONSTIPATION [None]
  - SHOCK [None]
